FAERS Safety Report 20106914 (Version 61)
Quarter: 2024Q2

REPORT INFORMATION
  Report Type: Report from Study
  Country: CO (occurrence: CO)
  Receive Date: 20211124
  Receipt Date: 20240621
  Transmission Date: 20240715
  Serious: Yes (Other)
  Sender: FDA-Public Use
  Company Number: CO-TAKEDA-2021TUS048544

PATIENT
  Age: 60 Year
  Sex: Female
  Weight: 60 kg

DRUGS (8)
  1. ICATIBANT [Suspect]
     Active Substance: ICATIBANT ACETATE
     Indication: Hereditary angioedema
     Dosage: 1 DOSAGE FORM
     Route: 058
     Dates: start: 20180908
  2. ICATIBANT [Suspect]
     Active Substance: ICATIBANT ACETATE
     Indication: Hereditary angioedema
     Dosage: 1 DOSAGE FORM
     Route: 058
     Dates: start: 20180908
  3. ICATIBANT [Suspect]
     Active Substance: ICATIBANT ACETATE
     Dosage: 1 DOSAGE FORM
     Route: 058
     Dates: start: 20190908
  4. ICATIBANT [Suspect]
     Active Substance: ICATIBANT ACETATE
     Dosage: 1 DOSAGE FORM
     Route: 058
     Dates: start: 20190908
  5. ICATIBANT [Suspect]
     Active Substance: ICATIBANT ACETATE
     Dosage: UNK
     Route: 058
  6. ICATIBANT [Suspect]
     Active Substance: ICATIBANT ACETATE
     Dosage: UNK
     Route: 058
  7. CARBAMAZEPINE [Concomitant]
     Active Substance: CARBAMAZEPINE
     Dosage: UNK
     Route: 065
  8. MODERNA COVID-19 VACCINE [Concomitant]
     Active Substance: ELASOMERAN
     Indication: COVID-19 immunisation
     Dosage: UNK
     Route: 065
     Dates: start: 20220323

REACTIONS (33)
  - Cyst [Recovering/Resolving]
  - Gingival cyst [Recovering/Resolving]
  - Treatment noncompliance [Unknown]
  - Pain [Unknown]
  - Death of relative [Unknown]
  - Mouth haemorrhage [Unknown]
  - Weight decreased [Unknown]
  - Speech disorder [Recovering/Resolving]
  - Procedural pain [Recovering/Resolving]
  - Procedural anxiety [Unknown]
  - Abdominal pain upper [Unknown]
  - Influenza [Recovered/Resolved]
  - Depressed mood [Recovering/Resolving]
  - Crying [Unknown]
  - Medical device site discomfort [Unknown]
  - Oral discomfort [Unknown]
  - Anxiety [Recovered/Resolved]
  - Feeding disorder [Unknown]
  - Wound [Recovering/Resolving]
  - Gingival pain [Recovered/Resolved]
  - Limb mass [Unknown]
  - Eye disorder [Not Recovered/Not Resolved]
  - Visual impairment [Unknown]
  - Eye pain [Unknown]
  - Odynophagia [Recovering/Resolving]
  - Emotional distress [Recovering/Resolving]
  - Post procedural complication [Not Recovered/Not Resolved]
  - Feeling abnormal [Unknown]
  - Psychiatric symptom [Unknown]
  - Asthenia [Unknown]
  - Pain in extremity [Not Recovered/Not Resolved]
  - Headache [Recovered/Resolved]
  - Product prescribing error [Unknown]

NARRATIVE: CASE EVENT DATE: 20211111
